FAERS Safety Report 8531494-8 (Version None)
Quarter: 2012Q3

REPORT INFORMATION
  Report Type: 
  Country: None (occurrence: None)
  Receive Date: 20120723
  Receipt Date: 20120718
  Transmission Date: 20120928
  Serious: Yes (Death, Hospitalization)
  Sender: FDA-Public Use
  Company Number: US-BRACCO-008311

PATIENT
  Sex: Female
  Weight: 100 kg

DRUGS (13)
  1. SYNTHROID [Concomitant]
  2. VITAMIN B12 NOS [Concomitant]
  3. TOPIRAMATE [Concomitant]
  4. AMLODIPINE [Concomitant]
  5. CELEBREX [Concomitant]
  6. PRAMIPEXOLE DIHYCHLORIDE [Concomitant]
  7. BETHANECHOL [Concomitant]
  8. ISOVUE-M 200 [Suspect]
     Indication: BACK PAIN
     Route: 037
     Dates: start: 20120713, end: 20120713
  9. ISOVUE-M 200 [Suspect]
     Indication: SPINAL COLUMN STENOSIS
     Route: 037
     Dates: start: 20120713, end: 20120713
  10. ISOVUE-M 200 [Suspect]
     Indication: SPINAL MYELOGRAM
     Route: 037
     Dates: start: 20120713, end: 20120713
  11. ISOVUE-M 200 [Suspect]
     Indication: PAIN IN EXTREMITY
     Route: 037
     Dates: start: 20120713, end: 20120713
  12. ATENOLOL [Concomitant]
  13. AMITRIPTYLINE HCL [Concomitant]

REACTIONS (1)
  - BRAIN OEDEMA [None]
